FAERS Safety Report 7203919-1 (Version None)
Quarter: 2010Q4

REPORT INFORMATION
  Report Type: 
  Country: None (occurrence: None)
  Receive Date: 20101230
  Receipt Date: 20101221
  Transmission Date: 20110411
  Serious: Yes (Hospitalization)
  Sender: FDA-Public Use
  Company Number: CA-JNJFOC-20101104967

PATIENT
  Sex: Male
  Weight: 95.8 kg

DRUGS (8)
  1. REMICADE [Suspect]
     Indication: CROHN'S DISEASE
     Route: 042
  2. VITAMIN B-12 [Concomitant]
     Route: 030
  3. PENTASA [Concomitant]
  4. IMOVANE [Concomitant]
  5. CELEXA [Concomitant]
  6. RHOVANE [Concomitant]
  7. CALCIUM [Concomitant]
  8. ASCORBIC ACID [Concomitant]

REACTIONS (1)
  - GASTROINTESTINAL STENOSIS [None]
